FAERS Safety Report 8507928-1 (Version None)
Quarter: 2012Q3

REPORT INFORMATION
  Report Type: 
  Country: None (occurrence: None)
  Receive Date: 20120709
  Receipt Date: 20120709
  Transmission Date: 20120928
  Serious: Yes (Hospitalization)
  Sender: FDA-Public Use
  Company Number: None

PATIENT
  Age: 36 Year
  Sex: Female
  Weight: 58.9676 kg

DRUGS (2)
  1. CYMBALTA [Suspect]
     Indication: OSTEOARTHRITIS
     Dosage: 60MG ONCE A DAY PO
     Route: 048
     Dates: start: 20120630, end: 20120630
  2. CYMBALTA [Suspect]
     Indication: INTERVERTEBRAL DISC DEGENERATION
     Dosage: 60MG ONCE A DAY PO
     Route: 048
     Dates: start: 20120630, end: 20120630

REACTIONS (7)
  - DYSSTASIA [None]
  - GAIT DISTURBANCE [None]
  - TREMOR [None]
  - DYSURIA [None]
  - MUSCULAR WEAKNESS [None]
  - MUSCLE SPASMS [None]
  - VOMITING [None]
